FAERS Safety Report 8567461-8 (Version None)
Quarter: 2012Q3

REPORT INFORMATION
  Report Type: 
  Country: None (occurrence: None)
  Receive Date: 20120803
  Receipt Date: 20120724
  Transmission Date: 20120928
  Serious: Yes (Hospitalization)
  Sender: FDA-Public Use
  Company Number: US-ACTELION-A-NJ2011-52425

PATIENT
  Age: 60 Year
  Sex: Female

DRUGS (1)
  1. TRACLEER [Suspect]
     Indication: PULMONARY ARTERIAL HYPERTENSION
     Dosage: UNK
     Route: 048

REACTIONS (6)
  - DRY SKIN [None]
  - DYSPNOEA [None]
  - SKIN HYPERTROPHY [None]
  - OXYGEN SATURATION DECREASED [None]
  - SEASONAL ALLERGY [None]
  - ECZEMA [None]
